FAERS Safety Report 24177104 (Version 4)
Quarter: 2024Q3

REPORT INFORMATION
  Report Type: Spontaneous
  Country: US (occurrence: US)
  Receive Date: 20240806
  Receipt Date: 20240827
  Transmission Date: 20241017
  Serious: Yes (Other)
  Sender: ROCHE
  Company Number: US-ROCHE-10000048380

PATIENT
  Age: 8 Year
  Sex: Male
  Weight: 38.1 kg

DRUGS (7)
  1. XOLAIR [Suspect]
     Active Substance: OMALIZUMAB
     Indication: Asthma
     Dosage: 375MG TOTAL (TWO SYRINGES) ONE HAD 300 AND THE OTHER HAD 75?DOSAGE FORM PEN.
     Route: 058
     Dates: start: 20240730, end: 20240730
  2. XOLAIR [Suspect]
     Active Substance: OMALIZUMAB
     Indication: Food allergy
     Dosage: 375MG TOTAL (TWO SYRINGES) ONE HAD 300 AND THE OTHER HAD 75?DOSAGE FORM PEN.
     Route: 058
     Dates: start: 20240730, end: 20240730
  3. XOLAIR [Suspect]
     Active Substance: OMALIZUMAB
     Indication: Food allergy
     Dosage: 375MG TOTAL (TWO SYRINGES) ONE HAD 300 AND THE OTHER HAD 75?DOSAGE FORM PEN.
     Route: 058
     Dates: start: 20240730, end: 20240730
  4. SYMBICORT [Concomitant]
     Active Substance: BUDESONIDE\FORMOTEROL FUMARATE DIHYDRATE
     Dosage: TWO PUFFS BY MOUTH TWICE A DAY
     Route: 055
  5. ALBUTEROL [Concomitant]
     Active Substance: ALBUTEROL
     Route: 055
  6. CETIRIZINE [Concomitant]
     Active Substance: CETIRIZINE HYDROCHLORIDE
     Route: 048
  7. FLONASE [Concomitant]
     Active Substance: FLUTICASONE PROPIONATE
     Dosage: ONE SPRAY IN BOTH NOSTRILS
     Route: 045

REACTIONS (1)
  - Anaphylactic reaction [Recovered/Resolved]

NARRATIVE: CASE EVENT DATE: 20240730
